FAERS Safety Report 9687564 (Version 3)
Quarter: 2013Q4

REPORT INFORMATION
  Report Type: Report from Study
  Country: BR (occurrence: BR)
  Receive Date: 20131114
  Receipt Date: 20131210
  Transmission Date: 20140711
  Serious: Yes (Death)
  Sender: FDA-Public Use
  Company Number: BR-ROCHE-1065272

PATIENT
  Age: 59 Year
  Sex: Female
  Weight: 70 kg

DRUGS (9)
  1. ACTEMRA [Suspect]
     Indication: RHEUMATOID ARTHRITIS
     Route: 065
     Dates: start: 20111128, end: 20130727
  2. ACTEMRA [Suspect]
     Route: 065
     Dates: start: 201112
  3. ACTEMRA [Suspect]
     Route: 065
     Dates: start: 201201
  4. ACTEMRA [Suspect]
     Route: 065
     Dates: start: 201202
  5. ACTEMRA [Suspect]
     Route: 065
     Dates: start: 201203
  6. ACTEMRA [Suspect]
     Route: 065
     Dates: start: 201204
  7. LOSARTAN [Concomitant]
     Route: 065
  8. VOLTAREN [Concomitant]
     Route: 065
  9. PREDNISONE [Concomitant]
     Route: 065

REACTIONS (2)
  - Pulmonary oedema [Fatal]
  - Blood cholesterol increased [Not Recovered/Not Resolved]
